FAERS Safety Report 7571375-X (Version None)
Quarter: 2011Q2

REPORT INFORMATION
  Report Type: 
  Country: None (occurrence: None)
  Receive Date: 20110624
  Receipt Date: 20110615
  Transmission Date: 20111010
  Serious: Yes (Hospitalization)
  Sender: FDA-Public Use
  Company Number: GB-SANOFI-AVENTIS-2011SA019171

PATIENT
  Age: 8 Year
  Sex: Female

DRUGS (2)
  1. LANTUS [Suspect]
     Route: 058
     Dates: start: 20050101
  2. AUTOPEN 24 [Suspect]
     Dates: start: 20050101

REACTIONS (5)
  - DRUG DOSE OMISSION [None]
  - PRODUCT QUALITY ISSUE [None]
  - KETOACIDOSIS [None]
  - DIABETIC KETOACIDOSIS [None]
  - WRONG TECHNIQUE IN DRUG USAGE PROCESS [None]
